FAERS Safety Report 5825159-0 (Version None)
Quarter: 2008Q3

REPORT INFORMATION
  Report Type: 
  Country: None (occurrence: None)
  Receive Date: 20080725
  Receipt Date: 20080725
  Transmission Date: 20090109
  Serious: Yes (Life-Threatening)
  Sender: FDA-Public Use
  Company Number: None

PATIENT

DRUGS (1)
  1. NEXIUM [Suspect]
     Indication: GASTRIC DISORDER
     Dosage: 40 MG 2X DAILY CAPSULE WAS EMPTY
     Dates: start: 20080714

REACTIONS (3)
  - DYSPHAGIA [None]
  - PHARMACEUTICAL PRODUCT COMPLAINT [None]
  - WRONG TECHNIQUE IN DRUG USAGE PROCESS [None]
